FAERS Safety Report 7713975-X (Version None)
Quarter: 2011Q3

REPORT INFORMATION
  Report Type: 
  Country: None (occurrence: None)
  Receive Date: 20110826
  Receipt Date: 20110819
  Transmission Date: 20111222
  Serious: Yes (Other)
  Sender: FDA-Public Use
  Company Number: CA-MERCK-1108USA02376

PATIENT
  Age: 82 Year
  Sex: Male

DRUGS (2)
  1. ZOCOR [Suspect]
     Route: 048
  2. ZOCOR [Suspect]
     Route: 048

REACTIONS (6)
  - MUSCULAR WEAKNESS [None]
  - LIVER FUNCTION TEST ABNORMAL [None]
  - ABASIA [None]
  - ASTHENIA [None]
  - BLOOD CREATINE PHOSPHOKINASE INCREASED [None]
  - MUSCULOSKELETAL STIFFNESS [None]
